FAERS Safety Report 7248093-0 (Version None)
Quarter: 2011Q1

REPORT INFORMATION
  Report Type: 
  Country: None (occurrence: None)
  Receive Date: 20110127
  Receipt Date: 20110118
  Transmission Date: 20110831
  Serious: Yes (Hospitalization)
  Sender: FDA-Public Use
  Company Number: AT-B.I. PHARMACEUTICALS,INC./RIDGEFIELD-2010-AP-00621AP

PATIENT
  Sex: Female
  Weight: 118 kg

DRUGS (11)
  1. CLAFORAN [Concomitant]
     Indication: PNEUMONIA
     Dosage: 4 G
     Route: 042
     Dates: start: 20101010, end: 20101010
  2. CLAFORAN [Concomitant]
     Dosage: 8 G
     Route: 042
     Dates: start: 20101011, end: 20101013
  3. PRADAXA [Suspect]
     Indication: THROMBOSIS PROPHYLAXIS
     Dosage: 220 MG
     Route: 048
     Dates: start: 20100929, end: 20101110
  4. NOVALGIN [Concomitant]
     Dosage: 3 G
     Route: 048
     Dates: start: 20101015, end: 20101028
  5. CLAFORAN [Concomitant]
     Dosage: 4 G
     Route: 042
     Dates: start: 20101014, end: 20101014
  6. PANTOLOC [Concomitant]
     Indication: PROPHYLAXIS AGAINST GASTROINTESTINAL ULCER
     Dosage: 40 MG
     Route: 048
     Dates: start: 20100928
  7. ATENOLOL [Concomitant]
     Indication: HYPERTENSION
     Dosage: 100 MG
     Route: 048
  8. ZINNAT [Concomitant]
     Indication: PNEUMONIA
     Dosage: 2000 MG
     Route: 048
     Dates: start: 20101014, end: 20101017
  9. ALLOPURINOL [Concomitant]
     Indication: PROPHYLAXIS
     Dosage: 100 MG
     Route: 048
  10. NOVALGIN [Concomitant]
     Dosage: 2 G
     Route: 048
     Dates: start: 20101006, end: 20101014
  11. NOVALGIN [Concomitant]
     Indication: PAIN PROPHYLAXIS
     Dosage: 3 G
     Route: 048
     Dates: start: 20101001, end: 20101005

REACTIONS (2)
  - PNEUMONIA [None]
  - HEPATIC ENZYME INCREASED [None]
